FAERS Safety Report 7377152-7 (Version None)
Quarter: 2011Q1

REPORT INFORMATION
  Report Type: 
  Country: None (occurrence: None)
  Receive Date: 20110328
  Receipt Date: 20110318
  Transmission Date: 20110831
  Serious: No
  Sender: FDA-Public Use
  Company Number: US-BIOGENIDEC-2011BI010555

PATIENT
  Age: 56 Year
  Sex: Male

DRUGS (1)
  1. TYSABRI [Suspect]
     Indication: MULTIPLE SCLEROSIS
     Route: 042
     Dates: start: 20101102

REACTIONS (7)
  - EXOSTOSIS [None]
  - HYPOAESTHESIA [None]
  - THROMBOSIS IN DEVICE [None]
  - PAIN IN EXTREMITY [None]
  - GENERAL SYMPTOM [None]
  - VASODILATATION [None]
  - ARTHRITIS [None]
